FAERS Safety Report 15068116 (Version 1)
Quarter: 2018Q3

REPORT INFORMATION
  Report Type: Spontaneous
  Country: CN (occurrence: CN)
  Receive Date: 20180626
  Receipt Date: 20180626
  Transmission Date: 20181010
  Serious: Yes (Hospitalization, Other)
  Sender: FDA-Public Use
  Company Number: CN-PFIZER INC-2018255539

PATIENT
  Age: 10 Year

DRUGS (2)
  1. HUMAN COAGULATION FACTOR VIII (RDNA) [Suspect]
     Active Substance: ANTIHEMOPHILIC FACTOR, HUMAN RECOMBINANT
     Indication: FACTOR VIII DEFICIENCY
  2. XYNTHA [Suspect]
     Active Substance: ANTIHEMOPHILIC FACTOR, HUMAN RECOMBINANT RESIDUES 743-1636 DELETED
     Indication: FACTOR VIII DEFICIENCY
     Dosage: UNK, AS NEEDED
     Route: 042

REACTIONS (3)
  - Chest pain [Unknown]
  - Chest discomfort [Unknown]
  - Thoracic haemorrhage [Unknown]
